FAERS Safety Report 24126999 (Version 4)
Quarter: 2024Q4

REPORT INFORMATION
  Report Type: Report from Study
  Country: DE (occurrence: DE)
  Receive Date: 20240723
  Receipt Date: 20241024
  Transmission Date: 20250115
  Serious: Yes (Hospitalization, Other)
  Sender: RANBAXY
  Company Number: DE-SUN PHARMACEUTICAL INDUSTRIES LTD-2024RR-456742

PATIENT
  Age: 55 Year
  Sex: Female
  Weight: 62 kg

DRUGS (4)
  1. SONIDEGIB [Suspect]
     Active Substance: SONIDEGIB
     Indication: Medulloblastoma
     Dosage: 200 MILLIGRAM, EVERY 1 DAYS
     Route: 048
     Dates: start: 20240104, end: 20240704
  2. CISPLATIN [Suspect]
     Active Substance: CISPLATIN
     Indication: Medulloblastoma
     Dosage: 113.5 MILLIGRAM, EVERY 6 WEEKS
     Route: 042
     Dates: start: 20240403, end: 20240626
  3. VINCRISTINE [Suspect]
     Active Substance: VINCRISTINE
     Indication: Medulloblastoma
     Dosage: 2 MILLIGRAM, TWICE EVERY 6 WEEKS
     Route: 042
     Dates: start: 20240118, end: 20240626
  4. LOMUSTINE [Suspect]
     Active Substance: LOMUSTINE
     Indication: Medulloblastoma
     Dosage: 120 MILLIGRAM, EVERY 6 WEEKS
     Route: 048
     Dates: start: 20240403, end: 20240626

REACTIONS (1)
  - Acute kidney injury [Recovered/Resolved]

NARRATIVE: CASE EVENT DATE: 20240705
